FAERS Safety Report 12406574 (Version 1)
Quarter: 2016Q2

REPORT INFORMATION
  Report Type: Spontaneous
  Country: US (occurrence: None)
  Receive Date: 20160525
  Receipt Date: 20160525
  Transmission Date: 20160815
  Serious: Yes (Hospitalization)
  Sender: FDA-Public Use
  Company Number: None

PATIENT

DRUGS (5)
  1. ALLOPURINOL. [Concomitant]
     Active Substance: ALLOPURINOL
  2. ALBUTEROL. [Concomitant]
     Active Substance: ALBUTEROL
  3. BUDESONIDE-FOMOTEROL [Concomitant]
  4. RUXOLITINIB, 5 MG [Suspect]
     Active Substance: RUXOLITINIB
     Route: 048
     Dates: start: 20160301, end: 20160425
  5. ACYCLOVIR. [Concomitant]
     Active Substance: ACYCLOVIR

REACTIONS (13)
  - Acute kidney injury [None]
  - Respiratory failure [None]
  - Confusional state [None]
  - Respiratory rate increased [None]
  - Chronic obstructive pulmonary disease [None]
  - Sepsis [None]
  - Thrombocytopenia [None]
  - Sinus tachycardia [None]
  - Ventricular extrasystoles [None]
  - Pneumonia [None]
  - Dyspnoea [None]
  - Speech disorder [None]
  - Restlessness [None]

NARRATIVE: CASE EVENT DATE: 20160413
